FAERS Safety Report 25663815 (Version 1)
Quarter: 2025Q3

REPORT INFORMATION
  Report Type: Spontaneous
  Country: US (occurrence: US)
  Receive Date: 20250811
  Receipt Date: 20250811
  Transmission Date: 20251021
  Serious: No
  Sender: CHIESI
  Company Number: US-CHIESI-2025CHF04620

PATIENT
  Age: 71 Year
  Sex: Female

DRUGS (2)
  1. CLEVIPREX [Suspect]
     Active Substance: CLEVIDIPINE
     Indication: Blood pressure increased
     Route: 042
  2. CLEVIPREX [Suspect]
     Active Substance: CLEVIDIPINE
     Route: 042

REACTIONS (1)
  - Off label use [Not Recovered/Not Resolved]
